FAERS Safety Report 6246619-7 (Version None)
Quarter: 2009Q2

REPORT INFORMATION
  Report Type: 
  Country: None (occurrence: None)
  Receive Date: 20090624
  Receipt Date: 20090624
  Transmission Date: 20091009
  Serious: No
  Sender: FDA-Public Use
  Company Number: None

PATIENT
  Age: 53 Year
  Sex: Female
  Weight: 77.1115 kg

DRUGS (1)
  1. ZICAM MATRIXX INITIATIVES, INC [Suspect]
     Indication: NASOPHARYNGITIS
     Dosage: SWABS TWICE A DAY NASAL
     Route: 045
     Dates: start: 20081223, end: 20081227

REACTIONS (1)
  - HYPOSMIA [None]
